FAERS Safety Report 14128538 (Version 9)
Quarter: 2018Q1

REPORT INFORMATION
  Report Type: Spontaneous
  Country: CA (occurrence: CA)
  Receive Date: 20171026
  Receipt Date: 20180228
  Transmission Date: 20180508
  Serious: Yes (Hospitalization, Other)
  Sender: FDA-Public Use
  Company Number: CA-PFIZER INC-2017454302

PATIENT
  Age: 51 Year
  Sex: Female

DRUGS (14)
  1. VENTOLIN HFA [Concomitant]
     Active Substance: ALBUTEROL SULFATE
     Dosage: 100 UG, UNK
  2. APO ESOMEPRAZOLE [Concomitant]
     Active Substance: ESOMEPRAZOLE MAGNESIUM
     Dosage: 40 MG, UNK
  3. DILTIAZEM HCL TEVA [Concomitant]
     Dosage: 180 MG, UNK
  4. PMS ROSUVASTATIN [Concomitant]
     Active Substance: ROSUVASTATIN
     Dosage: 10 MG, UNK
  5. PMS-VALACYCLOVIR [Concomitant]
     Dosage: 500 MG, UNK
  6. APO MOMETASONE [Concomitant]
     Active Substance: MOMETASONE
     Dosage: 50 UG, UNK
  7. DILAUDID [Concomitant]
     Active Substance: HYDROMORPHONE HYDROCHLORIDE
     Dosage: 2 MG, UNK
  8. RAN-FENTANYL [Concomitant]
     Dosage: 75 UG, UNK
  9. THRIVE [Concomitant]
     Active Substance: NICOTINE
     Dosage: 2 MG, UNK
  10. ALENDRONATE SODIUM W/COLECALCIFEROL [Concomitant]
     Active Substance: ALENDRONATE SODIUM\CHOLECALCIFEROL
     Dosage: 70 MG, UNK
  11. D-TABS [Concomitant]
     Active Substance: CHOLECALCIFEROL
     Dosage: 1000 IU, UNK
  12. EPIPEN [Suspect]
     Active Substance: EPINEPHRINE
     Indication: FOOD ALLERGY
     Dosage: 0.3 MG, UNK
     Route: 030
     Dates: start: 20161026, end: 20161026
  13. NICODERM CQ [Concomitant]
     Active Substance: NICOTINE
     Dosage: 21 MG, UNK
  14. ALPRAZOLAM. [Concomitant]
     Active Substance: ALPRAZOLAM
     Dosage: 0.5 MG, UNK

REACTIONS (11)
  - Device failure [Unknown]
  - Injection site pain [Unknown]
  - Sensory disturbance [Unknown]
  - Product quality issue [Unknown]
  - Muscular weakness [Unknown]
  - Compartment syndrome [Unknown]
  - Muscle atrophy [Unknown]
  - Scar [Unknown]
  - Device use issue [Unknown]
  - Gait disturbance [Unknown]
  - Oedema [Unknown]

NARRATIVE: CASE EVENT DATE: 20161026
